FAERS Safety Report 8487452-5 (Version None)
Quarter: 2012Q2

REPORT INFORMATION
  Report Type: 
  Country: None (occurrence: None)
  Receive Date: 20120606
  Receipt Date: 20120524
  Transmission Date: 20120825
  Serious: Yes (Other)
  Sender: FDA-Public Use
  Company Number: 2012032455

PATIENT
  Age: 24 Year
  Sex: Male
  Weight: 96 kg

DRUGS (1)
  1. BERINERT [Suspect]
     Dosage: (100 UNITS AT 1300 HOURS AND 1700 HOURS INTRAVENOUS (NOT OTHERWISE SPECIFIED)
     Route: 042

REACTIONS (2)
  - UNEVALUABLE EVENT [None]
  - OFF LABEL USE [None]
